FAERS Safety Report 4786222-9 (Version None)
Quarter: 2005Q4

REPORT INFORMATION
  Report Type: 
  Country: None (occurrence: None)
  Receive Date: 20051003
  Receipt Date: 20051003
  Transmission Date: 20060501
  Serious: Yes (Hospitalization, Other)
  Sender: FDA-Public Use
  Company Number: None

PATIENT
  Sex: Female
  Weight: 75 kg

DRUGS (6)
  1. PACLITAXEL [Suspect]
     Indication: BREAST CANCER
     Dosage: SEE IMAGE
     Dates: start: 20050901, end: 20050901
  2. ACIPHEX [Concomitant]
  3. CARTIA XT [Concomitant]
  4. COUMADIN [Concomitant]
  5. SINGULAIR [Concomitant]
  6. SYNTHROID [Concomitant]

REACTIONS (1)
  - HEART RATE INCREASED [None]
